FAERS Safety Report 16681646 (Version 1)
Quarter: 2019Q3

REPORT INFORMATION
  Report Type: Spontaneous
  Country: US (occurrence: US)
  Receive Date: 20190807
  Receipt Date: 20190807
  Transmission Date: 20191004
  Serious: Yes (Other)
  Sender: FDA-Public Use
  Company Number: None

PATIENT
  Age: 29 Year
  Sex: Female

DRUGS (1)
  1. CETROTIDE [Suspect]
     Active Substance: CETRORELIX ACETATE
     Indication: INFERTILITY
     Route: 058
     Dates: start: 20190802

REACTIONS (4)
  - Injection site swelling [None]
  - Injection site erythema [None]
  - Injection site rash [None]
  - Injection site pruritus [None]

NARRATIVE: CASE EVENT DATE: 20190802
